FAERS Safety Report 9591969 (Version 2)
Quarter: 2013Q4

REPORT INFORMATION
  Report Type: Spontaneous
  Country: US (occurrence: US)
  Receive Date: 20131004
  Receipt Date: 20131004
  Transmission Date: 20140711
  Serious: No
  Sender: FDA-Public Use
  Company Number: US-AMGEN-USASP2012081169

PATIENT
  Age: 60 Year
  Sex: Female

DRUGS (1)
  1. ENBREL [Suspect]
     Indication: RHEUMATOID ARTHRITIS
     Dosage: 50 MG, QWK
     Route: 058
     Dates: start: 20110509

REACTIONS (5)
  - Pharyngitis streptococcal [Unknown]
  - Rash erythematous [Unknown]
  - Rash pruritic [Unknown]
  - Rash [Unknown]
  - Myalgia [Unknown]
